FAERS Safety Report 6745745-3 (Version None)
Quarter: 2010Q2

REPORT INFORMATION
  Report Type: 
  Country: None (occurrence: None)
  Receive Date: 20100528
  Receipt Date: 20100517
  Transmission Date: 20101027
  Serious: Yes (Other)
  Sender: FDA-Public Use
  Company Number: PHHY2010US31921

PATIENT
  Sex: Female
  Weight: 75.9 kg

DRUGS (2)
  1. EXJADE [Suspect]
     Indication: THALASSAEMIA BETA
     Dosage: DAILY, UNK
     Route: 048
     Dates: start: 20060801
  2. EXJADE [Suspect]
     Indication: IRON OVERLOAD

REACTIONS (8)
  - ABDOMINAL DISCOMFORT [None]
  - CHILLS [None]
  - DECREASED APPETITE [None]
  - DIARRHOEA [None]
  - ENDOMETRIOSIS [None]
  - HAEMATOCHEZIA [None]
  - PYREXIA [None]
  - RENAL PAIN [None]
